FAERS Safety Report 6679926-4 (Version None)
Quarter: 2010Q2

REPORT INFORMATION
  Report Type: 
  Country: None (occurrence: None)
  Receive Date: 20100413
  Receipt Date: 20100315
  Transmission Date: 20101027
  Serious: No
  Sender: FDA-Public Use
  Company Number: US-BAXTER-2010BH004515

PATIENT
  Sex: Female
  Weight: 65 kg

DRUGS (1)
  1. HEPARIN SODIUM INJECTION [Suspect]
     Indication: DRUG USE FOR UNKNOWN INDICATION
     Route: 058
     Dates: start: 20080424

REACTIONS (6)
  - ABDOMINAL PAIN [None]
  - CHILLS [None]
  - ERYTHEMA [None]
  - FATIGUE [None]
  - MEMORY IMPAIRMENT [None]
  - PRURITUS [None]
